FAERS Safety Report 5287659-4 (Version None)
Quarter: 2007Q2

REPORT INFORMATION
  Report Type: 
  Country: None (occurrence: None)
  Receive Date: 20070405
  Receipt Date: 20070321
  Transmission Date: 20071010
  Serious: Yes (Death)
  Sender: FDA-Public Use
  Company Number: US-JNJFOC-20070203560

PATIENT
  Sex: Male
  Weight: 45 kg

DRUGS (16)
  1. INFLIXIMAB [Suspect]
     Route: 042
  2. INFLIXIMAB [Suspect]
     Route: 042
  3. INFLIXIMAB [Suspect]
     Route: 042
  4. INFLIXIMAB [Suspect]
     Indication: CROHN'S DISEASE
     Dosage: HAD THREE INITIATION DOSES OVER SIX WEEKS THEN RECEIVED ^EVERY 8 INFUSIONS^ AT 5 MG/KG/INFUSION
     Route: 042
  5. AZATHIOPRINE [Concomitant]
  6. SINGULAIR [Concomitant]
  7. ADVAIR DISKUS 100/50 [Concomitant]
     Dosage: ONE PUFF
  8. LOSEC [Concomitant]
  9. LOSEC [Concomitant]
  10. BENADRYL [Concomitant]
     Route: 048
  11. BENADRYL [Concomitant]
     Route: 048
  12. BENADRYL [Concomitant]
     Indication: PREMEDICATION
     Route: 048
  13. SOLU-CORTEF [Concomitant]
     Route: 042
  14. SOLU-CORTEF [Concomitant]
     Route: 042
  15. SOLU-CORTEF [Concomitant]
     Indication: PREMEDICATION
     Route: 042
  16. VENTOLIN [Concomitant]
     Dosage: P.R.N. (AS OCCASION REQUIRES)

REACTIONS (3)
  - ARRHYTHMIA [None]
  - CARDIAC ARREST [None]
  - LONG QT SYNDROME [None]
